FAERS Safety Report 19728150 (Version 1)
Quarter: 2021Q3

REPORT INFORMATION
  Report Type: Report from Study
  Country: IT (occurrence: IT)
  Receive Date: 20210820
  Receipt Date: 20210820
  Transmission Date: 20211014
  Serious: Yes (Death, Hospitalization)
  Sender: FDA-Public Use
  Company Number: IT-MYLANLABS-2021M1054024

PATIENT
  Age: 85 Year
  Sex: Female

DRUGS (3)
  1. DELORAZEPAM [Suspect]
     Active Substance: DELORAZEPAM
     Indication: ANXIETY
     Dosage: SEVERAL DROPS
     Route: 065
  2. HYDROXYETHYL STARCH [Suspect]
     Active Substance: HETASTARCH
     Indication: RESPIRATORY ARREST
     Dosage: UNK
     Route: 065
  3. FLUMAZENIL. [Suspect]
     Active Substance: FLUMAZENIL
     Indication: RESPIRATORY ARREST
     Dosage: UNK
     Route: 065

REACTIONS (2)
  - Drug ineffective [Fatal]
  - Respiratory arrest [Fatal]
